FAERS Safety Report 4479595-8 (Version None)
Quarter: 2004Q4

REPORT INFORMATION
  Report Type: 
  Country: None (occurrence: None)
  Receive Date: 20041018
  Receipt Date: 20041007
  Transmission Date: 20050328
  Serious: Yes (Disabling)
  Sender: FDA-Public Use
  Company Number: 2004PK01674

PATIENT
  Age: 64 Year
  Sex: Male
  Weight: 89 kg

DRUGS (2)
  1. ZESTRIL [Suspect]
     Indication: ESSENTIAL HYPERTENSION
     Dosage: 10 MG DAILY PO
     Route: 048
     Dates: start: 20001017, end: 20020911
  2. ATORVASTATIN CALCIUM [Suspect]
     Indication: LIPID METABOLISM DISORDER
     Dosage: 10 MG PO
     Route: 048
     Dates: start: 19990329

REACTIONS (1)
  - ANOSMIA [None]
